FAERS Safety Report 18741866 (Version 2)
Quarter: 2021Q1

REPORT INFORMATION
  Report Type: Spontaneous
  Country: CA (occurrence: CA)
  Receive Date: 20210114
  Receipt Date: 20210131
  Transmission Date: 20210419
  Serious: Yes (Other)
  Sender: FDA-Public Use
  Company Number: CA-PURDUE-USA-2020-0197503

PATIENT
  Sex: Female

DRUGS (2)
  1. OXYCONTIN [Suspect]
     Active Substance: OXYCODONE HYDROCHLORIDE
     Indication: PAIN
     Dosage: 40 MG, UNK
     Route: 048
  2. STATEX                             /00036302/ [Suspect]
     Active Substance: MORPHINE SULFATE
     Indication: PAIN
     Dosage: UNK
     Route: 065

REACTIONS (10)
  - Irritability [Unknown]
  - Drug dependence [Unknown]
  - Liver disorder [Unknown]
  - Fatigue [Unknown]
  - Renal failure [Unknown]
  - Epigastric discomfort [Unknown]
  - Delusion [Unknown]
  - Thinking abnormal [Unknown]
  - Toxicity to various agents [Unknown]
  - Cerebrovascular accident [Unknown]
